FAERS Safety Report 6578383-6 (Version None)
Quarter: 2010Q1

REPORT INFORMATION
  Report Type: 
  Country: None (occurrence: None)
  Receive Date: 20100211
  Receipt Date: 20100204
  Transmission Date: 20100710
  Serious: Yes (Other)
  Sender: FDA-Public Use
  Company Number: GB-PFIZER INC-2010015357

PATIENT
  Sex: Female

DRUGS (1)
  1. CHAMPIX [Suspect]
     Route: 048

REACTIONS (2)
  - ACCIDENT [None]
  - JAW FRACTURE [None]
